FAERS Safety Report 8535478-5 (Version None)
Quarter: 2012Q3

REPORT INFORMATION
  Report Type: 
  Country: None (occurrence: None)
  Receive Date: 20120718
  Receipt Date: 20120718
  Transmission Date: 20120928
  Serious: No
  Sender: FDA-Public Use
  Company Number: None

PATIENT
  Sex: Female
  Weight: 117.9352 kg

DRUGS (1)
  1. OXYCODONE AND ACETAMINOPHEN [Suspect]
     Indication: PAIN
     Dosage: 1 TO 2 TABLETS AT BEDTIME PRN ORAL
     Route: 048
     Dates: start: 20120627, end: 20120713

REACTIONS (1)
  - DRUG HYPERSENSITIVITY [None]
